FAERS Safety Report 13881615 (Version 4)
Quarter: 2017Q3

REPORT INFORMATION
  Report Type: Spontaneous
  Country: DE (occurrence: DE)
  Receive Date: 20170818
  Receipt Date: 20170907
  Transmission Date: 20171127
  Serious: Yes (Life-Threatening, Hospitalization, Other)
  Sender: FDA-Public Use
  Company Number: DE-TORRENT-00006850

PATIENT
  Age: 25 Year
  Sex: Female

DRUGS (2)
  1. AMITRIPTYLINE [Suspect]
     Active Substance: AMITRIPTYLINE
  2. QUETIAPINE. [Suspect]
     Active Substance: QUETIAPINE

REACTIONS (12)
  - Shock [Recovered/Resolved]
  - Arrhythmia [Recovered/Resolved]
  - Anticholinergic syndrome [Recovered/Resolved]
  - Myoclonus [Recovered/Resolved]
  - Suicide attempt [Recovered/Resolved]
  - Overdose [Recovered/Resolved]
  - Coma [Recovered/Resolved]
  - Cardiogenic shock [Recovered/Resolved]
  - Ventricular tachycardia [Recovered/Resolved]
  - Toxicity to various agents [Recovered/Resolved]
  - Cardiotoxicity [Recovered/Resolved]
  - Hyperthermia [Recovered/Resolved]
